FAERS Safety Report 8962868 (Version 1)
Quarter: 2012Q4

REPORT INFORMATION
  Report Type: 
  Country: US (occurrence: US)
  Receive Date: 20121214
  Receipt Date: 20121214
  Transmission Date: 20130627
  Serious: Yes (Other)
  Sender: FDA-Public Use
  Company Number: US-PFIZER INC-2012312137

PATIENT
  Age: 57 Year
  Sex: Female
  Weight: 58.96 kg

DRUGS (9)
  1. LYRICA [Suspect]
     Indication: LUPUS ERYTHEMATOSUS
     Dosage: 75 mg, 2x/day
     Dates: end: 2010
  2. LYRICA [Suspect]
     Dosage: 75 mg, 2x/day
     Dates: end: 2012
  3. CELEBREX [Suspect]
     Indication: LUPUS ERYTHEMATOSUS
     Dosage: 200 mg, daily
     Dates: end: 2010
  4. CELEBREX [Suspect]
     Dosage: 200 mg, daily
     Dates: end: 2012
  5. PLAQUENIL [Suspect]
     Indication: LUPUS ERYTHEMATOSUS
     Dosage: 200 mg, daily
     Dates: end: 2010
  6. PLAQUENIL [Suspect]
     Indication: ASTHMA
     Dosage: 200 mg, daily
     Dates: end: 2012
  7. CYMBALTA [Concomitant]
     Dosage: 60 mg, daily
     Dates: end: 2012
  8. SYNTHROID [Concomitant]
     Indication: THYROID DISORDER
     Dosage: 137 ug, daily
     Dates: end: 2012
  9. ATENOLOL [Concomitant]
     Indication: BLOOD PRESSURE HIGH
     Dosage: 100 mg, 2x/day
     Dates: end: 2012

REACTIONS (7)
  - Systemic lupus erythematosus [Not Recovered/Not Resolved]
  - Activities of daily living impaired [Not Recovered/Not Resolved]
  - Asthenia [Not Recovered/Not Resolved]
  - Pain [Not Recovered/Not Resolved]
  - Malaise [Not Recovered/Not Resolved]
  - Joint swelling [Not Recovered/Not Resolved]
  - Off label use [Unknown]
